FAERS Safety Report 8537531-9 (Version None)
Quarter: 2012Q3

REPORT INFORMATION
  Report Type: 
  Country: None (occurrence: None)
  Receive Date: 20120725
  Receipt Date: 20120702
  Transmission Date: 20120928
  Serious: Yes (Other)
  Sender: FDA-Public Use
  Company Number: US-BAXTER-2012BAX008473

PATIENT
  Sex: Female

DRUGS (3)
  1. DIANEAL [Suspect]
     Route: 033
  2. DIANEAL LOW CALCIUM W/ DEXTROSE 1.5% [Suspect]
     Indication: PERITONEAL DIALYSIS
     Route: 033
  3. EXTRANEAL [Suspect]
     Route: 033

REACTIONS (2)
  - DEVICE INTERACTION [None]
  - BLOOD GLUCOSE ABNORMAL [None]
